FAERS Safety Report 4765322-3 (Version None)
Quarter: 2005Q3

REPORT INFORMATION
  Report Type: 
  Country: None (occurrence: None)
  Receive Date: 20050909
  Receipt Date: 20050315
  Transmission Date: 20060218
  Serious: Yes (Hospitalization, Disabling, Other)
  Sender: FDA-Public Use
  Company Number: US-MERCK-0503USA03180

PATIENT
  Age: 83 Year
  Sex: Female
  Weight: 55 kg

DRUGS (11)
  1. VIOXX [Suspect]
     Indication: ARTHRITIS
     Route: 048
     Dates: start: 19990601, end: 20040930
  2. ADVIL [Concomitant]
     Route: 065
  3. TYLENOL [Concomitant]
     Indication: ARTHRITIS
     Route: 065
  4. LEVOTHYROXINE SODIUM [Concomitant]
     Indication: GOITRE
     Route: 065
  5. SPIRONOLACTONE [Concomitant]
     Route: 065
  6. FUROSEMIDE [Concomitant]
     Route: 065
  7. NABUMETONE [Concomitant]
     Indication: ARTHRITIS
     Route: 065
  8. LISINOPRIL [Concomitant]
     Route: 048
  9. ATENOLOL [Concomitant]
     Route: 065
  10. QUININE [Concomitant]
     Indication: MUSCLE SPASMS
     Route: 065
  11. TEMAZEPAM [Concomitant]
     Indication: SLEEP DISORDER
     Route: 065

REACTIONS (25)
  - ADVERSE EVENT [None]
  - AMNESIA [None]
  - ANGINA PECTORIS [None]
  - BLOOD SODIUM DECREASED [None]
  - CARDIAC DISORDER [None]
  - CARDIAC FAILURE CONGESTIVE [None]
  - CEREBROVASCULAR ACCIDENT [None]
  - CONFUSIONAL STATE [None]
  - CORONARY ARTERY DISEASE [None]
  - DEPRESSION [None]
  - FALL [None]
  - GASTROINTESTINAL DISORDER [None]
  - HAEMATOMA [None]
  - HEART INJURY [None]
  - HYPERLIPIDAEMIA [None]
  - HYPERTENSION [None]
  - HYPOTENSION [None]
  - HYPOTHYROIDISM [None]
  - LOSS OF CONSCIOUSNESS [None]
  - OSTEOPOROSIS [None]
  - RADICULOPATHY [None]
  - RENAL FAILURE CHRONIC [None]
  - SYNCOPE [None]
  - TRANSIENT ISCHAEMIC ATTACK [None]
  - VASCULAR INJURY [None]
